FAERS Safety Report 12245249 (Version 2)
Quarter: 2016Q2

REPORT INFORMATION
  Report Type: Spontaneous
  Country: US (occurrence: US)
  Receive Date: 20160407
  Receipt Date: 20160520
  Transmission Date: 20160815
  Serious: No
  Sender: FDA-Public Use
  Company Number: US-PFIZER INC-2016146434

PATIENT
  Age: 36 Year
  Sex: Male

DRUGS (1)
  1. IBUPROFEN. [Suspect]
     Active Substance: IBUPROFEN
     Dosage: UNK

REACTIONS (5)
  - Drug hypersensitivity [Unknown]
  - Tinnitus [Unknown]
  - Drug intolerance [Unknown]
  - Autonomic nervous system imbalance [Unknown]
  - Abdominal pain upper [Unknown]
